FAERS Safety Report 6709432-X (Version None)
Quarter: 2010Q2

REPORT INFORMATION
  Report Type: 
  Country: None (occurrence: None)
  Receive Date: 20100504
  Receipt Date: 20100428
  Transmission Date: 20101027
  Serious: Yes (Hospitalization, Other)
  Sender: FDA-Public Use
  Company Number: FR-ASTRAZENECA-2010SE19704

PATIENT
  Age: 906 Month
  Sex: Male
  Weight: 70 kg

DRUGS (12)
  1. SYMBICORT [Suspect]
     Indication: CHRONIC OBSTRUCTIVE PULMONARY DISEASE
     Dosage: TWO INHALATIONS TWO TIMES A DAY
     Route: 055
     Dates: end: 20100212
  2. NASACORT [Interacting]
     Indication: CHRONIC OBSTRUCTIVE PULMONARY DISEASE
     Dosage: TWO INHALATIONS DAILY
     Route: 045
     Dates: end: 20100212
  3. KALETRA [Interacting]
     Indication: HIV INFECTION
     Route: 048
  4. BRICANYL [Concomitant]
  5. NEXIUM [Concomitant]
  6. KIVEXA [Concomitant]
     Indication: HIV INFECTION
  7. INSULINE [Concomitant]
  8. COTAREG [Concomitant]
  9. PLAVIX [Concomitant]
  10. LYRICA [Concomitant]
  11. LASIX [Concomitant]
  12. AUGMENTIN '125' [Concomitant]

REACTIONS (9)
  - ABNORMAL BEHAVIOUR [None]
  - ADRENOCORTICAL INSUFFICIENCY ACUTE [None]
  - BRONCHITIS [None]
  - CUSHINGOID [None]
  - DEHYDRATION [None]
  - DRUG INTERACTION [None]
  - HYPERKALAEMIA [None]
  - HYPERURICAEMIA [None]
  - RENAL FAILURE [None]
